FAERS Safety Report 7762286-5 (Version None)
Quarter: 2011Q3

REPORT INFORMATION
  Report Type: 
  Country: None (occurrence: None)
  Receive Date: 20110919
  Receipt Date: 20110919
  Transmission Date: 20111222
  Serious: No
  Sender: FDA-Public Use
  Company Number: None

PATIENT
  Age: 49 Year
  Sex: Male
  Weight: 156.7 kg

DRUGS (2)
  1. DRONEDARONE HCL [Suspect]
     Indication: WOLFF-PARKINSON-WHITE SYNDROME
     Dosage: 400 MG BID PO
     Route: 048
     Dates: start: 20100830, end: 20110531
  2. DRONEDARONE HCL [Suspect]
     Indication: SUPRAVENTRICULAR TACHYCARDIA
     Dosage: 400 MG BID PO
     Route: 048
     Dates: start: 20100830, end: 20110531

REACTIONS (2)
  - CARDIAC FAILURE [None]
  - VENTRICULAR EXTRASYSTOLES [None]
